FAERS Safety Report 10209235 (Version 1)
Quarter: 2014Q2

REPORT INFORMATION
  Report Type: Spontaneous
  Country: US (occurrence: US)
  Receive Date: 20140530
  Receipt Date: 20140530
  Transmission Date: 20141212
  Serious: No
  Sender: FDA-Public Use
  Company Number: US-GILEAD-2014-0103825

PATIENT
  Age: 68 Year
  Sex: Male

DRUGS (2)
  1. SOFOSBUVIR [Suspect]
     Indication: HEPATITIS C
     Dosage: UNK
     Route: 065
     Dates: start: 20140501
  2. SIMEPREVIR [Concomitant]
     Dosage: UNK
     Dates: start: 20140501

REACTIONS (1)
  - Vision blurred [Unknown]
